FAERS Safety Report 6419105-9 (Version None)
Quarter: 2009Q4

REPORT INFORMATION
  Report Type: 
  Country: None (occurrence: None)
  Receive Date: 20091027
  Receipt Date: 20091014
  Transmission Date: 20100525
  Serious: Yes (Other)
  Sender: FDA-Public Use
  Company Number: 2009AP003119

PATIENT
  Age: 10 Year
  Sex: Female

DRUGS (3)
  1. RISPERIDONE [Suspect]
     Dosage: 0.25 MG; PO
     Route: 048
  2. STRATTERA [Suspect]
     Indication: ATTENTION DEFICIT/HYPERACTIVITY DISORDER
     Dosage: 18 MG; PO
     Route: 048
     Dates: start: 20090113, end: 20090114
  3. TOMOXETINE HYDROCHLORIDE (TOMOXETINE HYDROCHLORIDE) [Concomitant]

REACTIONS (6)
  - ATAXIA [None]
  - DRUG INEFFECTIVE [None]
  - DRUG INTERACTION [None]
  - MEMORY IMPAIRMENT [None]
  - SPEECH DISORDER [None]
  - SYNCOPE [None]
